APPROVED DRUG PRODUCT: ITRACONAZOLE
Active Ingredient: ITRACONAZOLE
Strength: 10MG/ML
Dosage Form/Route: SOLUTION;ORAL
Application: A212239 | Product #001 | TE Code: AA
Applicant: ANNORA PHARMA PRIVATE LTD
Approved: Sep 1, 2020 | RLD: No | RS: No | Type: RX